FAERS Safety Report 5913770-8 (Version None)
Quarter: 2008Q4

REPORT INFORMATION
  Report Type: 
  Country: None (occurrence: None)
  Receive Date: 20081007
  Receipt Date: 20080922
  Transmission Date: 20090506
  Serious: Yes (Hospitalization)
  Sender: FDA-Public Use
  Company Number: 2008GR_BP0508

PATIENT
  Sex: Female

DRUGS (1)
  1. LEVONORGESTREL [Suspect]
     Dosage: (0.75 MG), ORAL
     Route: 048
     Dates: start: 20080701, end: 20080701

REACTIONS (7)
  - DRUG EXPOSURE DURING PREGNANCY [None]
  - DRUG INEFFECTIVE [None]
  - ECTOPIC PREGNANCY [None]
  - GAIT DISTURBANCE [None]
  - PAIN [None]
  - PREGNANCY ON ORAL CONTRACEPTIVE [None]
  - SALPINGECTOMY [None]
